FAERS Safety Report 10012474 (Version 2)
Quarter: 2014Q2

REPORT INFORMATION
  Report Type: Spontaneous
  Country: US (occurrence: US)
  Receive Date: 20140312
  Receipt Date: 20140403
  Transmission Date: 20141212
  Serious: No
  Sender: FDA-Public Use
  Company Number: US-PFIZER INC-2014069992

PATIENT
  Age: 48 Year
  Sex: Female

DRUGS (7)
  1. XELJANZ [Suspect]
     Indication: RHEUMATOID ARTHRITIS
     Dosage: 5 MG, 2X/DAY (OR BID)
     Route: 048
     Dates: start: 20140226, end: 20140228
  2. COUMADIN [Concomitant]
     Dosage: UNK
  3. AMLODIPINE [Concomitant]
     Dosage: UNK
  4. PREVACID [Concomitant]
     Dosage: UNK
  5. AMITIZA [Concomitant]
     Dosage: UNK
  6. SINGULAIR [Concomitant]
     Dosage: UNK
  7. BENEFIBER [Concomitant]
     Dosage: UNK

REACTIONS (1)
  - Pruritus [Recovered/Resolved]
